FAERS Safety Report 9917290 (Version 1)
Quarter: 2014Q1

REPORT INFORMATION
  Report Type: Spontaneous
  Country: CL (occurrence: CL)
  Receive Date: 20140221
  Receipt Date: 20140221
  Transmission Date: 20141002
  Serious: Yes (Other)
  Sender: FDA-Public Use
  Company Number: CL-PFIZER INC-2014050576

PATIENT
  Age: 88 Year
  Sex: Female

DRUGS (7)
  1. ATORVASTATIN CALCIUM [Suspect]
     Dosage: UNK
     Dates: start: 2003
  2. XALATAN [Suspect]
     Indication: GLAUCOMA
     Dosage: 1 DROP, DAILY
     Dates: start: 2003
  3. CELEBRA [Concomitant]
     Indication: ARTHRITIS
     Dosage: UNK
  4. ENALAPRIL [Concomitant]
     Dosage: UNK
  5. TRAMADOL [Concomitant]
     Dosage: UNK
  6. ACETAMINOPHEN [Concomitant]
     Dosage: UNK
  7. TRAMADOL/ACETAMINOPHEN [Concomitant]
     Dosage: UNK

REACTIONS (2)
  - Spinal disorder [Not Recovered/Not Resolved]
  - Hearing impaired [Not Recovered/Not Resolved]
